FAERS Safety Report 4344760-7 (Version None)
Quarter: 2004Q2

REPORT INFORMATION
  Report Type: 
  Country: None (occurrence: None)
  Receive Date: 20040423
  Receipt Date: 20040401
  Transmission Date: 20050107
  Serious: Yes (Hospitalization, Other)
  Sender: FDA-Public Use
  Company Number: PHFR2004GB01670

PATIENT
  Age: 54 Year
  Sex: Female

DRUGS (8)
  1. CLOZARIL [Suspect]
     Indication: SCHIZOPHRENIA
     Dosage: 600MG/DAY
     Route: 048
     Dates: start: 19960731
  2. CLOZARIL [Suspect]
     Dosage: 650MG/DAY
     Route: 048
     Dates: start: 20040325
  3. CLOZARIL [Suspect]
     Dosage: 700MG/DAY
     Route: 048
     Dates: start: 20040330
  4. FLUOXETINE [Concomitant]
     Dosage: 20MG/DAY
     Route: 065
  5. THYROXINE [Concomitant]
     Dosage: 100UG/DAY
     Route: 065
  6. TOLTERODINE [Concomitant]
     Dosage: 4MG/DAY
     Route: 065
  7. HALOPERIDOL [Concomitant]
     Dosage: 8MG/DAY
     Route: 065
  8. LORAZEPAM [Concomitant]
     Dosage: 1 MG, PRN
     Route: 065

REACTIONS (8)
  - COLD SWEAT [None]
  - CONVULSION [None]
  - GENERAL PHYSICAL HEALTH DETERIORATION [None]
  - HYPERTENSION [None]
  - LOSS OF CONSCIOUSNESS [None]
  - OBESITY [None]
  - PALLOR [None]
  - TONIC CLONIC MOVEMENTS [None]
